FAERS Safety Report 15399848 (Version 1)
Quarter: 2018Q4

REPORT INFORMATION
  Report Type: Spontaneous
  Country: DE (occurrence: DE)
  Receive Date: 20180918
  Receipt Date: 20180918
  Transmission Date: 20190204
  Serious: Yes (Other)
  Sender: FDA-Public Use
  Company Number: DE-TEVA-2018-DE-956057

PATIENT
  Sex: Male
  Weight: 76 kg

DRUGS (7)
  1. OMEPRAZOLE. [Suspect]
     Active Substance: OMEPRAZOLE
     Dosage: UNK
     Route: 065
  2. L THYROX HEXAL 50 [Suspect]
     Active Substance: LEVOTHYROXINE SODIUM
     Route: 065
  3. METHADONHYDROCHLORID-SOLUTION 1% [Suspect]
     Active Substance: METHADONE HYDROCHLORIDE
     Dosage: UNK
     Route: 065
  4. ORFIRIL LONG 300MG [Suspect]
     Active Substance: VALPROIC ACID
     Dosage: UNK MG, UNK
     Route: 065
  5. PREGABALIN-NEURAXPHARM 50MG [Suspect]
     Active Substance: PREGABALIN
     Dosage: UNK
     Route: 065
  6. CHLORPROTHIXEN-NEURAXPHARM 50MG [Suspect]
     Active Substance: CHLORPROTHIXENE HYDROCHLORIDE
     Dosage: UNK
     Route: 065
  7. VALDOXAN [Suspect]
     Active Substance: AGOMELATINE
     Dosage: UNK

REACTIONS (1)
  - Autoimmune disorder [Unknown]

NARRATIVE: CASE EVENT DATE: 2018
